FAERS Safety Report 13880594 (Version 1)
Quarter: 2017Q3

REPORT INFORMATION
  Report Type: Spontaneous
  Country: BR (occurrence: BR)
  Receive Date: 20170818
  Receipt Date: 20170818
  Transmission Date: 20171127
  Serious: Yes (Other)
  Sender: FDA-Public Use
  Company Number: BR-AMGEN-BRASP2017122754

PATIENT
  Age: 80 Year
  Sex: Female
  Weight: 55 kg

DRUGS (8)
  1. CALCIFEROL [Concomitant]
     Active Substance: ERGOCALCIFEROL
     Dosage: 400 UNIT, UNK
  2. VITAMIN D [Concomitant]
     Active Substance: CHOLECALCIFEROL
     Dosage: UNK
  3. TECNOMET [Concomitant]
     Active Substance: METHOTREXATE
     Dosage: 2.5 MG, UNK
  4. PROLIA [Suspect]
     Active Substance: DENOSUMAB
     Indication: CALCIUM METABOLISM DISORDER
     Dosage: 60 MG, Q6MO
     Route: 058
     Dates: start: 201612
  5. CALCIUM [Concomitant]
     Active Substance: CALCIUM
     Dosage: UNK
  6. OSCAL D [Concomitant]
     Active Substance: CALCIUM CARBONATE\CHOLECALCIFEROL
     Indication: OSTEOPOROSIS
     Dosage: UNK
  7. ENDOFOLIN [Concomitant]
     Active Substance: FOLIC ACID
     Indication: BLOOD CALCIUM ABNORMAL
     Dosage: UNK
  8. PURAN [Concomitant]
     Active Substance: LEVOTHYROXINE SODIUM
     Indication: THYROID DISORDER

REACTIONS (4)
  - Tooth abscess [Not Recovered/Not Resolved]
  - Device breakage [Not Recovered/Not Resolved]
  - Off label use [Unknown]
  - Tooth fracture [Recovered/Resolved]

NARRATIVE: CASE EVENT DATE: 201707
